FAERS Safety Report 10235614 (Version 1)
Quarter: 2014Q2

REPORT INFORMATION
  Report Type: Spontaneous
  Country: US (occurrence: None)
  Receive Date: 20140612
  Receipt Date: 20140612
  Transmission Date: 20141212
  Serious: Yes (Other)
  Sender: FDA-Public Use
  Company Number: None

PATIENT
  Age: 45 Year
  Sex: Male
  Weight: 71.67 kg

DRUGS (1)
  1. INVEGA SUSTENNA [Suspect]
     Indication: BIPOLAR DISORDER
     Dosage: 1 INJECTION EVERY 4 WEEKS, ONCE IN 4 WEEKS , INJECTED IN SHOULDER MUSCLE
     Route: 030
     Dates: start: 20131001, end: 20140611

REACTIONS (1)
  - Cataract [None]
